FAERS Safety Report 8408975 (Version 2)
Quarter: 2012Q4

REPORT INFORMATION
  Report Type: 
  Country: US (occurrence: US)
  Receive Date: 20120216
  Receipt Date: 20120824
  Transmission Date: 20130627
  Serious: Yes (Hospitalization)
  Sender: FDA-Public Use
  Company Number: US-ELI_LILLY_AND_COMPANY-US201202002684

PATIENT
  Age: 51 None
  Sex: Female

DRUGS (6)
  1. ZYPREXA [Suspect]
     Indication: BIPOLAR DISORDER
     Dosage: 40 mg, each evening
     Route: 048
  2. PROZAC [Concomitant]
     Dosage: 40 mg, qd
  3. PRAZOSIN [Concomitant]
     Dosage: 4 mg, each evening
  4. DOXEPIN [Concomitant]
     Dosage: 50 mg, each evening
  5. TOPAMAX [Concomitant]
     Dosage: 5 mg, bid
  6. AMBIEN [Concomitant]
     Dosage: 10 mg, each evening

REACTIONS (5)
  - Alcohol abuse [Recovered/Resolved]
  - Affective disorder [Recovered/Resolved]
  - Hospitalisation [Unknown]
  - Prescribed overdose [Unknown]
  - Insomnia [Unknown]
